FAERS Safety Report 7156663-3 (Version None)
Quarter: 2010Q4

REPORT INFORMATION
  Report Type: 
  Country: None (occurrence: None)
  Receive Date: 20101214
  Receipt Date: 20091123
  Transmission Date: 20110411
  Serious: No
  Sender: FDA-Public Use
  Company Number: US-ASTRAZENECA-2009SE28192

PATIENT
  Age: 82 Year
  Sex: Female
  Weight: 72.6 kg

DRUGS (2)
  1. CRESTOR [Suspect]
     Route: 048
     Dates: start: 20091109
  2. CLARINEX [Concomitant]

REACTIONS (3)
  - FATIGUE [None]
  - MALAISE [None]
  - PAIN IN EXTREMITY [None]
